FAERS Safety Report 5823955-7 (Version None)
Quarter: 2008Q3

REPORT INFORMATION
  Report Type: 
  Country: None (occurrence: None)
  Receive Date: 20080724
  Receipt Date: 20080711
  Transmission Date: 20090109
  Serious: Yes (Hospitalization)
  Sender: FDA-Public Use
  Company Number: 2008-02521

PATIENT
  Age: 72 Year
  Sex: Male
  Weight: 65 kg

DRUGS (11)
  1. VELCADE [Suspect]
     Indication: NON-SMALL CELL LUNG CANCER
     Dosage: 16 MG/M2, IV BOLUS
     Route: 040
     Dates: start: 20080201, end: 20080229
  2. CARBOPLATIN [Suspect]
     Indication: NON-SMALL CELL LUNG CANCER
     Dosage: 485 MG, INTRAVENOUS
     Route: 042
     Dates: start: 20080201, end: 20080222
  3. NEXIUM [Concomitant]
  4. SPRIVA       (TIOTROPIUM BROMIDE) [Concomitant]
  5. ADVAIR DISKUS 100/50 [Concomitant]
  6. ENALAPRIL MALEATE [Concomitant]
  7. XALATAN [Concomitant]
  8. HYDROCHLOROTHIAZIDE [Concomitant]
  9. COMPAZINE [Concomitant]
  10. DIFLUCAN [Concomitant]
  11. BEVACIZUMAB(BEVACIZUMAB) INJECTION [Suspect]
     Indication: NON-SMALL CELL LUNG CANCER
     Dates: end: 20080222

REACTIONS (5)
  - CLOSTRIDIAL INFECTION [None]
  - CULTURE STOOL POSITIVE [None]
  - DEHYDRATION [None]
  - DRUG TOXICITY [None]
  - NAUSEA [None]
